FAERS Safety Report 9682561 (Version 1)
Quarter: 2013Q4

REPORT INFORMATION
  Report Type: Spontaneous
  Country: DE (occurrence: DE)
  Receive Date: 20131112
  Receipt Date: 20131112
  Transmission Date: 20140711
  Serious: Yes (Other)
  Sender: FDA-Public Use
  Company Number: DE-ASTRAZENECA-2013SE81584

PATIENT
  Age: 37 Year
  Sex: Male

DRUGS (8)
  1. SEROQUEL PROLONG [Suspect]
     Route: 048
     Dates: start: 20130221, end: 20130221
  2. SEROQUEL PROLONG [Suspect]
     Route: 048
     Dates: start: 20130223
  3. RISPERDAL [Concomitant]
     Route: 048
     Dates: start: 20130105, end: 20130131
  4. RISPERDAL [Concomitant]
     Route: 048
     Dates: start: 20130201, end: 20130205
  5. RISPERDAL [Concomitant]
     Route: 048
     Dates: start: 20130206, end: 20130214
  6. RISPERDAL [Concomitant]
     Dosage: 3 - 1 MG/DAY
     Route: 048
     Dates: start: 20130215, end: 20130222
  7. BISOPROLOL [Concomitant]
     Route: 048
     Dates: start: 20130105
  8. XEPLION [Concomitant]
     Route: 030
     Dates: start: 20130201

REACTIONS (5)
  - Dermatitis allergic [Recovered/Resolved]
  - Rash [Recovered/Resolved]
  - Pruritus generalised [Unknown]
  - Folliculitis [Unknown]
  - Dermatitis acneiform [Unknown]
